FAERS Safety Report 6842933-2 (Version None)
Quarter: 2010Q3

REPORT INFORMATION
  Report Type: 
  Country: None (occurrence: None)
  Receive Date: 20100714
  Receipt Date: 20070918
  Transmission Date: 20110219
  Serious: No
  Sender: FDA-Public Use
  Company Number: US-PFIZER INC-2007066890

PATIENT
  Sex: Female
  Weight: 53.1 kg

DRUGS (8)
  1. CHANTIX [Suspect]
     Indication: SMOKING CESSATION THERAPY
     Dates: start: 20070803
  2. CHANTIX [Suspect]
     Indication: TOBACCO ABUSE
  3. CHANTIX [Suspect]
     Indication: CHRONIC OBSTRUCTIVE PULMONARY DISEASE
  4. OTHER HYPNOTICS AND SEDATIVES [Concomitant]
  5. RESTORIL [Concomitant]
  6. CALCIUM WITH VITAMIN D [Concomitant]
  7. DRUG, UNSPECIFIED [Concomitant]
  8. OMEPRAZOLE [Concomitant]

REACTIONS (5)
  - ALANINE AMINOTRANSFERASE INCREASED [None]
  - BLOOD ALKALINE PHOSPHATASE INCREASED [None]
  - MOOD ALTERED [None]
  - PRURITUS [None]
  - RASH [None]
